FAERS Safety Report 4641492-2 (Version None)
Quarter: 2005Q2

REPORT INFORMATION
  Report Type: 
  Country: None (occurrence: None)
  Receive Date: 20050421
  Receipt Date: 20020129
  Transmission Date: 20051028
  Serious: Yes (Life-Threatening, Hospitalization, Disabling)
  Sender: FDA-Public Use
  Company Number: FR-GLAXOSMITHKLINE-B0134566A

PATIENT
  Age: 33 Year
  Sex: Female
  Weight: 70 kg

DRUGS (5)
  1. AUGMENTIN '125' [Suspect]
     Route: 065
     Dates: start: 20000401
  2. LAMICTAL [Suspect]
     Indication: EPILEPSY
     Route: 048
     Dates: start: 19990716, end: 20020129
  3. CLAMOXYL [Suspect]
     Route: 065
     Dates: start: 20000801
  4. ASPIRIN [Suspect]
     Indication: BONE PAIN
     Route: 048
  5. DOLIPRANE [Concomitant]
     Route: 048
     Dates: start: 20000701

REACTIONS (13)
  - ACUTE GENERALISED EXANTHEMATOUS PUSTULOSIS [None]
  - BONE MARROW DEPRESSION [None]
  - DRUG HYPERSENSITIVITY [None]
  - HAEMOGLOBIN DECREASED [None]
  - INFECTION [None]
  - MENORRHAGIA [None]
  - METRORRHAGIA [None]
  - PALLOR [None]
  - PLATELET COUNT DECREASED [None]
  - SELF-MEDICATION [None]
  - TACHYCARDIA [None]
  - TOXIC SKIN ERUPTION [None]
  - WHITE BLOOD CELL COUNT DECREASED [None]
